FAERS Safety Report 23631478 (Version 5)
Quarter: 2024Q2

REPORT INFORMATION
  Report Type: Spontaneous
  Country: US (occurrence: US)
  Receive Date: 20240314
  Receipt Date: 20240620
  Transmission Date: 20240716
  Serious: No
  Sender: FDA-Public Use
  Company Number: US-PFIZER INC-202300450265

PATIENT
  Age: 46 Year
  Sex: Female

DRUGS (3)
  1. OXBRYTA [Suspect]
     Active Substance: VOXELOTOR
     Dosage: 500 MG, 3 TABS, ONCE DAILY
     Route: 048
     Dates: start: 20231208
  2. OXBRYTA [Suspect]
     Active Substance: VOXELOTOR
     Dosage: 500 MG, 3 TABS, ONCE DAILY
     Route: 048
     Dates: start: 20231211
  3. OXBRYTA [Suspect]
     Active Substance: VOXELOTOR
     Dosage: 500 MG, 3 TABS, ONCE DAILY
     Route: 048
     Dates: start: 20231215

REACTIONS (1)
  - Abdominal pain upper [Unknown]
